FAERS Safety Report 5282412-X (Version None)
Quarter: 2007Q1

REPORT INFORMATION
  Report Type: 
  Country: None (occurrence: None)
  Receive Date: 20070326
  Receipt Date: 20070313
  Transmission Date: 20070707
  Serious: Yes (Other)
  Sender: FDA-Public Use
  Company Number: 2007SP004716

PATIENT
  Age: 52 Year
  Sex: Female
  Weight: 63 kg

DRUGS (8)
  1. REBETOL [Suspect]
     Indication: CHRONIC HEPATITIS
     Dosage: SEE IMAGE
     Route: 048
     Dates: start: 20060110, end: 20060601
  2. REBETOL [Suspect]
     Indication: CHRONIC HEPATITIS
     Dosage: SEE IMAGE
     Route: 048
     Dates: start: 20060601
  3. PEGASYS [Suspect]
     Indication: CHRONIC HEPATITIS
     Dosage: SEE IMAGE
     Route: 058
     Dates: start: 20060110, end: 20060601
  4. PEGASYS [Suspect]
     Indication: CHRONIC HEPATITIS
     Dosage: SEE IMAGE
     Route: 058
     Dates: start: 20060601
  5. DIAZEPAM [Concomitant]
  6. ENALAPRIL MALEATE [Concomitant]
  7. RANITIDINE [Concomitant]
  8. NEOBRUFEN [Concomitant]

REACTIONS (2)
  - GRANULOCYTOPENIA [None]
  - THROMBOCYTOPENIA [None]
